FAERS Safety Report 11725336 (Version 1)
Quarter: 2015Q4

REPORT INFORMATION
  Report Type: Spontaneous
  Country: US (occurrence: US)
  Receive Date: 20151110
  Receipt Date: 20151110
  Transmission Date: 20160304
  Serious: No
  Sender: FDA-Public Use
  Company Number: US-ELI_LILLY_AND_COMPANY-US201109007414

PATIENT
  Age: 63 Year
  Sex: Female

DRUGS (11)
  1. FORTEO [Suspect]
     Active Substance: TERIPARATIDE
     Indication: OSTEOPOROSIS
     Dosage: 20 UG, QD
     Dates: start: 201101
  2. VITAMIN D [Concomitant]
     Active Substance: CHOLECALCIFEROL
  3. CYMBALTA [Concomitant]
     Active Substance: DULOXETINE HYDROCHLORIDE
     Indication: PAIN
  4. CALCIUM [Concomitant]
     Active Substance: CALCIUM
  5. ZOLPIDEM [Concomitant]
     Active Substance: ZOLPIDEM\ZOLPIDEM TARTRATE
  6. MULTIVITAMIN [Concomitant]
     Active Substance: VITAMINS
  7. ALPRAZOLAM. [Concomitant]
     Active Substance: ALPRAZOLAM
  8. HYDROCODONE [Concomitant]
     Active Substance: HYDROCODONE
  9. CELEBREX [Concomitant]
     Active Substance: CELECOXIB
  10. NAPROXEN. [Concomitant]
     Active Substance: NAPROXEN
     Indication: PAIN
  11. FORTEO [Suspect]
     Active Substance: TERIPARATIDE
     Dosage: 20 UG, QD

REACTIONS (14)
  - Myalgia [Unknown]
  - Pain [Unknown]
  - Arthralgia [Unknown]
  - Memory impairment [Unknown]
  - Sleep disorder due to a general medical condition [Unknown]
  - Visual acuity reduced [Unknown]
  - Pain in extremity [Unknown]
  - Diarrhoea [Unknown]
  - Limb discomfort [Unknown]
  - Ocular discomfort [Unknown]
  - Vision blurred [Unknown]
  - Spinal fracture [Unknown]
  - Constipation [Unknown]
  - Dry eye [Unknown]

NARRATIVE: CASE EVENT DATE: 201102
